FAERS Safety Report 17563777 (Version 2)
Quarter: 2020Q2

REPORT INFORMATION
  Report Type: Spontaneous
  Country: US (occurrence: US)
  Receive Date: 20200319
  Receipt Date: 20200504
  Transmission Date: 20200713
  Serious: No
  Sender: FDA-Public Use
  Company Number: NVSC2020US077555

PATIENT
  Sex: Female

DRUGS (1)
  1. ESTRADIOL ^SANDOZ^ [Suspect]
     Active Substance: ESTRADIOL
     Indication: PRODUCT USED FOR UNKNOWN INDICATION
     Dosage: 0.05 MG, QD
     Route: 065

REACTIONS (3)
  - Hot flush [Unknown]
  - Erythema [Unknown]
  - Product quality issue [Unknown]
